FAERS Safety Report 20137344 (Version 1)
Quarter: 2021Q4

REPORT INFORMATION
  Report Type: Spontaneous
  Country: US (occurrence: US)
  Receive Date: 20211201
  Receipt Date: 20211201
  Transmission Date: 20220303
  Serious: Yes (Life-Threatening, Other)
  Sender: FDA-Public Use
  Company Number: US-PFIZER INC-202101630821

PATIENT
  Age: 39 Year
  Sex: Female

DRUGS (1)
  1. TALAZOPARIB [Suspect]
     Active Substance: TALAZOPARIB
     Indication: Triple negative breast cancer
     Dosage: UNK

REACTIONS (2)
  - Intracranial mass [Recovering/Resolving]
  - Anaemia [Recovering/Resolving]
